FAERS Safety Report 5599156-7 (Version None)
Quarter: 2008Q1

REPORT INFORMATION
  Report Type: 
  Country: None (occurrence: None)
  Receive Date: 20080122
  Receipt Date: 20080114
  Transmission Date: 20080703
  Serious: Yes (Death)
  Sender: FDA-Public Use
  Company Number: FR-BRISTOL-MYERS SQUIBB COMPANY-14039044

PATIENT
  Age: 71 Year
  Sex: Female

DRUGS (5)
  1. ETOPOPHOS FOR INJ 100 MG [Suspect]
     Dosage: 2 COURSES OF THERAPY FROM 10JUL07-31JUL07.
     Dates: start: 20070710
  2. ENDOXAN [Suspect]
     Dosage: 2 COURSES OF THERAPY FROM 10JUL07-31JUL07.
     Dates: start: 20070611
  3. VELCADE [Suspect]
     Dosage: FRM:14FEB07-09MAR07-RECEIVED 5WKLY.
     Dates: start: 20070214, end: 20070313
  4. MELPHALAN [Suspect]
     Route: 042
     Dates: start: 20070326
  5. DEXAMETHASONE TAB [Suspect]

REACTIONS (4)
  - GUILLAIN-BARRE SYNDROME [None]
  - MULTI-ORGAN FAILURE [None]
  - PANCYTOPENIA [None]
  - PSEUDOMONAL SEPSIS [None]
